FAERS Safety Report 5309415-0 (Version None)
Quarter: 2007Q2

REPORT INFORMATION
  Report Type: 
  Country: None (occurrence: None)
  Receive Date: 20070427
  Receipt Date: 20070425
  Transmission Date: 20071010
  Serious: Yes (Other)
  Sender: FDA-Public Use
  Company Number: DE-BRISTOL-MYERS SQUIBB COMPANY-13757232

PATIENT

DRUGS (10)
  1. IFOSFAMIDE [Suspect]
     Indication: SARCOMA
     Route: 042
  2. CISPLATIN [Suspect]
     Indication: BONE SARCOMA
     Route: 042
  3. CARBOPLATIN [Suspect]
     Indication: BONE SARCOMA
     Route: 042
  4. RADIATION THERAPY [Suspect]
     Indication: SARCOMA
  5. DACTINOMYCIN [Concomitant]
     Indication: CHEMOTHERAPY
  6. DOXORUBICIN HCL [Concomitant]
     Indication: CHEMOTHERAPY
  7. EPIRUBICIN [Concomitant]
     Indication: CHEMOTHERAPY
  8. ETOPOSIDE [Concomitant]
     Indication: CHEMOTHERAPY
  9. METHOTREXATE [Concomitant]
     Indication: CHEMOTHERAPY
  10. VINCRISTINE [Concomitant]
     Indication: CHEMOTHERAPY

REACTIONS (2)
  - BLOOD CREATININE INCREASED [None]
  - RENAL TUBULAR DISORDER [None]
